FAERS Safety Report 11246557 (Version 1)
Quarter: 2015Q3

REPORT INFORMATION
  Report Type: Spontaneous
  Country: GB (occurrence: GB)
  Receive Date: 20150708
  Receipt Date: 20150708
  Transmission Date: 20151125
  Serious: Yes (Other)
  Sender: FDA-Public Use
  Company Number: GB-TEVA-575364ACC

PATIENT
  Age: 76 Year
  Sex: Male
  Weight: 77 kg

DRUGS (24)
  1. FUROSEMIDE. [Concomitant]
     Active Substance: FUROSEMIDE
  2. SIMVASTATIN. [Concomitant]
     Active Substance: SIMVASTATIN
  3. CONTRAST MEDIA [Concomitant]
     Active Substance: UNSPECIFIED INGREDIENT
     Indication: ANEURYSM REPAIR
  4. CYCLIZINE [Concomitant]
     Active Substance: CYCLIZINE
  5. ONDANSETRON [Concomitant]
     Active Substance: ONDANSETRON
  6. BENZYLPENICILLIN [Suspect]
     Active Substance: PENICILLIN G
     Indication: PNEUMONIA
     Dosage: 4.8 GRAM DAILY;
     Route: 042
     Dates: start: 20150523, end: 20150529
  7. GABAPENTIN. [Concomitant]
     Active Substance: GABAPENTIN
  8. TRAMADOL. [Concomitant]
     Active Substance: TRAMADOL
  9. MORPHINE [Concomitant]
     Active Substance: MORPHINE
  10. OMEPRAZOLE. [Concomitant]
     Active Substance: OMEPRAZOLE
  11. PARACETAMOL [Concomitant]
     Active Substance: ACETAMINOPHEN
  12. PERINDOPRIL [Concomitant]
     Active Substance: PERINDOPRIL
  13. SENNA [Concomitant]
     Active Substance: SENNA LEAF\SENNOSIDES\SENNOSIDES A AND B
  14. SODIUM BICARBONATE. [Concomitant]
     Active Substance: SODIUM BICARBONATE
  15. ENOXAPARIN [Concomitant]
     Active Substance: ENOXAPARIN
  16. IPRATROPIUM BROMIDE. [Concomitant]
     Active Substance: IPRATROPIUM BROMIDE
  17. TINZAPARIN [Concomitant]
     Active Substance: TINZAPARIN
  18. NEBIVOLOL. [Concomitant]
     Active Substance: NEBIVOLOL
  19. ZOPICLONE [Concomitant]
     Active Substance: ZOPICLONE
  20. CLARITHROMYCIN. [Suspect]
     Active Substance: CLARITHROMYCIN
     Indication: PNEUMONIA
     Dosage: 1000 MILLIGRAM DAILY;
     Route: 042
     Dates: start: 20150523, end: 20150529
  21. SALBUTAMOL [Concomitant]
     Active Substance: ALBUTEROL
  22. VANCOMYCIN [Concomitant]
     Active Substance: VANCOMYCIN
  23. ASPIRIN. [Concomitant]
     Active Substance: ASPIRIN
  24. OXYCODONE [Concomitant]
     Active Substance: OXYCODONE

REACTIONS (5)
  - Skin exfoliation [Recovering/Resolving]
  - Necrosis [Recovering/Resolving]
  - Impaired healing [Unknown]
  - Dermatitis allergic [Recovering/Resolving]
  - Blister rupture [Recovering/Resolving]

NARRATIVE: CASE EVENT DATE: 20150529
